FAERS Safety Report 16771512 (Version 1)
Quarter: 2019Q3

REPORT INFORMATION
  Report Type: Spontaneous
  Country: US (occurrence: US)
  Receive Date: 20190904
  Receipt Date: 20190904
  Transmission Date: 20191005
  Serious: Yes (Other)
  Sender: FDA-Public Use
  Company Number: US-BAYER-2019-156733

PATIENT
  Sex: Male

DRUGS (1)
  1. COPANLISIB. [Suspect]
     Active Substance: COPANLISIB
     Dosage: UNK

REACTIONS (1)
  - Diabetes mellitus [None]
